FAERS Safety Report 24887271 (Version 2)
Quarter: 2025Q1

REPORT INFORMATION
  Report Type: Spontaneous
  Country: US (occurrence: US)
  Receive Date: 20250127
  Receipt Date: 20250227
  Transmission Date: 20250408
  Serious: Yes (Hospitalization)
  Sender: SANOFI AVENTIS
  Company Number: US-SA-2025SA023489

PATIENT
  Age: 80 Year
  Sex: Female

DRUGS (2)
  1. DUPIXENT [Suspect]
     Active Substance: DUPILUMAB
     Indication: Asthma
     Dosage: 300 MG, QOW
     Route: 058
     Dates: start: 202412
  2. PIRFENIDONE [Concomitant]
     Active Substance: PIRFENIDONE

REACTIONS (7)
  - COVID-19 [Unknown]
  - Hospitalisation [Unknown]
  - Vomiting [Unknown]
  - Reflux gastritis [Unknown]
  - Hiatus hernia [Unknown]
  - Nausea [Unknown]
  - Diarrhoea [Not Recovered/Not Resolved]

NARRATIVE: CASE EVENT DATE: 20241201
